FAERS Safety Report 6484562-9 (Version None)
Quarter: 2009Q4

REPORT INFORMATION
  Report Type: 
  Country: None (occurrence: None)
  Receive Date: 20091209
  Receipt Date: 20091130
  Transmission Date: 20100525
  Serious: Yes (Death, Other)
  Sender: FDA-Public Use
  Company Number: US-PURDUE-USA-2004-0017131

PATIENT
  Sex: Male
  Weight: 89.796 kg

DRUGS (8)
  1. OXYCONTIN [Suspect]
     Indication: PAIN
     Dosage: 40 MG, SEE TEXT
     Route: 065
  2. MORPHINE SULFATE (SIMILAR TO NDA 19-516) [Suspect]
     Indication: DRUG USE FOR UNKNOWN INDICATION
  3. CODEINE [Suspect]
     Indication: DRUG USE FOR UNKNOWN INDICATION
  4. VIOXX [Concomitant]
     Route: 065
  5. LORCET-HD [Concomitant]
     Indication: DRUG USE FOR UNKNOWN INDICATION
     Dosage: 10 MG, TID
     Route: 065
  6. FIORICET [Concomitant]
     Indication: DRUG USE FOR UNKNOWN INDICATION
     Dosage: UNK MG, TID
     Route: 065
  7. XANAX [Concomitant]
     Indication: DRUG USE FOR UNKNOWN INDICATION
     Dosage: 1 MG, BID
     Route: 065
  8. SOMA [Concomitant]
     Route: 065

REACTIONS (11)
  - BACK PAIN [None]
  - COMPLETED SUICIDE [None]
  - DRUG ABUSE [None]
  - GUN SHOT WOUND [None]
  - HEADACHE [None]
  - HYPOAESTHESIA [None]
  - MUSCLE SPASMS [None]
  - OVERDOSE [None]
  - PAIN [None]
  - SOMNOLENCE [None]
  - TENDERNESS [None]
